FAERS Safety Report 19028484 (Version 4)
Quarter: 2021Q2

REPORT INFORMATION
  Report Type: Spontaneous
  Country: US (occurrence: US)
  Receive Date: 20210319
  Receipt Date: 20210608
  Transmission Date: 20210717
  Serious: No
  Sender: FDA-Public Use
  Company Number: US-ORGANON-O2103USA001735

PATIENT
  Age: 31 Year
  Sex: Female
  Weight: 74.39 kg

DRUGS (2)
  1. NEXPLANON [Suspect]
     Active Substance: ETONOGESTREL
     Indication: CONTRACEPTION
     Dosage: 1 IMPLANT (68 MILLIGRAM), IN LEFT UPPER ARM.
     Route: 059
     Dates: start: 20201207, end: 20210415
  2. PEPCID AC [Concomitant]
     Active Substance: FAMOTIDINE
     Dosage: UNK

REACTIONS (7)
  - Implant site bruising [Not Recovered/Not Resolved]
  - Implant site cyst [Unknown]
  - Implant site pain [Unknown]
  - Implant site mass [Unknown]
  - Keloid scar [Unknown]
  - Implant site discharge [Not Recovered/Not Resolved]
  - Device kink [Recovered/Resolved]

NARRATIVE: CASE EVENT DATE: 20201207
